FAERS Safety Report 7108033-1 (Version None)
Quarter: 2010Q4

REPORT INFORMATION
  Report Type: 
  Country: None (occurrence: None)
  Receive Date: 20101117
  Receipt Date: 20101110
  Transmission Date: 20110411
  Serious: Yes (Other)
  Sender: FDA-Public Use
  Company Number: US-BAYER-201040796NA

PATIENT
  Age: 33 Year
  Sex: Male

DRUGS (4)
  1. AVELOX [Suspect]
     Indication: HYPERAEMIA
     Dosage: UNIT DOSE: 400 MG
     Route: 048
     Dates: start: 20101109, end: 20101109
  2. SINGULAIR [Concomitant]
     Indication: PRODUCT USED FOR UNKNOWN INDICATION
  3. ADVAIR DISKUS 100/50 [Concomitant]
     Indication: PRODUCT USED FOR UNKNOWN INDICATION
  4. ALBUTEROL [Concomitant]
     Indication: PRODUCT USED FOR UNKNOWN INDICATION

REACTIONS (6)
  - DYSPNOEA [None]
  - HYPERSENSITIVITY [None]
  - LIP SWELLING [None]
  - PHARYNGEAL OEDEMA [None]
  - PRURITUS GENERALISED [None]
  - SWOLLEN TONGUE [None]
